FAERS Safety Report 8988446 (Version 1)
Quarter: 2012Q4

REPORT INFORMATION
  Report Type: Spontaneous
  Country: US (occurrence: None)
  Receive Date: 20121221
  Receipt Date: 20121221
  Transmission Date: 20130627
  Serious: No
  Sender: FDA-Public Use
  Company Number: None

PATIENT
  Age: 58 Year
  Sex: Male
  Weight: 55.5 kg

DRUGS (2)
  1. RIBAVIRIN [Suspect]
     Indication: HEPATITIS C
     Dosage: MG  PO
     Route: 048
     Dates: start: 20121002, end: 20121113
  2. BOCEPREVIR [Suspect]
     Indication: HEPATITIS C
     Dosage: MG  PO
     Route: 048
     Dates: start: 20121029, end: 20121113

REACTIONS (1)
  - Rash pruritic [None]
